FAERS Safety Report 8386765-5 (Version None)
Quarter: 2012Q2

REPORT INFORMATION
  Report Type: 
  Country: None (occurrence: None)
  Receive Date: 20120522
  Receipt Date: 20120522
  Transmission Date: 20120825
  Serious: Yes (Life-Threatening, Other)
  Sender: FDA-Public Use
  Company Number: None

PATIENT
  Sex: Male
  Weight: 104.3273 kg

DRUGS (1)
  1. CARBAMAZEPINE [Suspect]
     Indication: CONVULSION
     Dosage: 600 MG/ 400 MG 1X DAY/ 1X DAY PO
     Route: 048
     Dates: start: 20120429, end: 20120504

REACTIONS (4)
  - ROAD TRAFFIC ACCIDENT [None]
  - PRODUCT SUBSTITUTION ISSUE [None]
  - CONVULSION [None]
  - AMNESIA [None]
